FAERS Safety Report 9898407 (Version 3)
Quarter: 2014Q1

REPORT INFORMATION
  Report Type: Spontaneous
  Country: US (occurrence: US)
  Receive Date: 20140214
  Receipt Date: 20140307
  Transmission Date: 20141002
  Serious: Yes (Other)
  Sender: FDA-Public Use
  Company Number: US-IAC JAPAN XML-USA-2013-0109025

PATIENT
  Age: 34 Year
  Sex: Female
  Weight: 86.17 kg

DRUGS (6)
  1. BUTRANS [Suspect]
     Indication: BACK PAIN
     Dosage: 15 MCG/HR, WEEKLY
     Route: 062
     Dates: start: 20131120, end: 20131121
  2. BUTRANS [Suspect]
     Indication: NECK PAIN
  3. BUTRANS [Suspect]
     Indication: NERVE INJURY
  4. BUTRANS [Suspect]
     Indication: PAIN IN EXTREMITY
  5. SYNTHROID [Concomitant]
     Indication: HYPOTHYROIDISM
     Dosage: UNKNOWN
  6. GONAL F [Concomitant]
     Indication: INFERTILITY TESTS
     Dosage: UNKNOWN

REACTIONS (18)
  - Convulsion [Recovered/Resolved]
  - Dyspnoea [Recovered/Resolved]
  - Speech disorder [Recovered/Resolved]
  - Dyskinesia [Recovered/Resolved]
  - Gait disturbance [Recovered/Resolved]
  - Muscle spasms [Recovered/Resolved]
  - Muscle twitching [Recovered/Resolved]
  - Musculoskeletal stiffness [Recovered/Resolved]
  - Muscle rigidity [Recovered/Resolved]
  - Abasia [Recovered/Resolved]
  - Bruxism [Recovered/Resolved]
  - Back disorder [Recovered/Resolved]
  - Malaise [Recovered/Resolved]
  - Fatigue [Recovered/Resolved]
  - Nausea [Recovered/Resolved]
  - Unevaluable event [Recovered/Resolved]
  - Exophthalmos [Recovered/Resolved]
  - Dysphemia [Recovered/Resolved]
